FAERS Safety Report 16700606 (Version 1)
Quarter: 2019Q3

REPORT INFORMATION
  Report Type: Spontaneous
  Country: RU (occurrence: RU)
  Receive Date: 20190814
  Receipt Date: 20190814
  Transmission Date: 20191004
  Serious: Yes (Hospitalization)
  Sender: FDA-Public Use
  Company Number: RU-TEVA-2019-RU-1090788

PATIENT
  Age: 6 Decade
  Sex: Female

DRUGS (2)
  1. CISPLATIN. [Suspect]
     Active Substance: CISPLATIN
     Indication: RECTAL ADENOCARCINOMA
     Dates: start: 201404
  2. CAPECITABINE. [Suspect]
     Active Substance: CAPECITABINE
     Indication: RECTAL ADENOCARCINOMA
     Dates: start: 201404

REACTIONS (9)
  - Coronary artery disease [Recovering/Resolving]
  - Acute myocardial infarction [Recovered/Resolved with Sequelae]
  - Cardiac aneurysm [Not Recovered/Not Resolved]
  - Intracardiac thrombus [Unknown]
  - Cardiac failure [Not Recovered/Not Resolved]
  - Coronary artery stenosis [Recovering/Resolving]
  - Coronary artery dissection [Recovering/Resolving]
  - Cardiac ventricular disorder [Not Recovered/Not Resolved]
  - Coronary artery occlusion [Recovering/Resolving]

NARRATIVE: CASE EVENT DATE: 2014
